FAERS Safety Report 14057843 (Version 1)
Quarter: 2017Q4

REPORT INFORMATION
  Report Type: Report from Study
  Country: IN (occurrence: IN)
  Receive Date: 20171006
  Receipt Date: 20171006
  Transmission Date: 20180321
  Serious: Yes (Other)
  Sender: FDA-Public Use
  Company Number: IN-BAUSCH-BL-2017-028500

PATIENT
  Weight: 42 kg

DRUGS (3)
  1. PEGYLATED INTERFERON ALFA 2B [Suspect]
     Active Substance: PEGINTERFERON ALFA-2B
     Indication: HEPATITIS C
     Dosage: 50 MICROG/DOSE EVERY WEEK
     Route: 058
     Dates: start: 20141110, end: 20150509
  2. RIBAVIRIN. [Suspect]
     Active Substance: RIBAVIRIN
     Indication: HEPATITIS C
     Route: 048
     Dates: start: 20141110, end: 20150509
  3. PEGYLATED INTERFERON ALFA 2A [Suspect]
     Active Substance: PEGINTERFERON ALFA-2A
     Indication: HEPATITIS C
     Dosage: DOSE OF 135 MICROG/DOSE EVERY WEEK
     Route: 058
     Dates: start: 20141110, end: 20150509

REACTIONS (2)
  - Hepatitis C [Unknown]
  - Drug ineffective [Unknown]
